FAERS Safety Report 16777188 (Version 3)
Quarter: 2019Q4

REPORT INFORMATION
  Report Type: Report from Study
  Country: US (occurrence: US)
  Receive Date: 20190905
  Receipt Date: 20191009
  Transmission Date: 20200122
  Serious: No
  Sender: FDA-Public Use
  Company Number: US-EMD SERONO-9102548

PATIENT
  Sex: Male

DRUGS (2)
  1. MAVENCLAD [Suspect]
     Active Substance: CLADRIBINE
     Dosage: SECOND ROUND THERAPY
     Route: 048
     Dates: start: 20190524, end: 20190528
  2. MAVENCLAD [Suspect]
     Active Substance: CLADRIBINE
     Indication: RELAPSING-REMITTING MULTIPLE SCLEROSIS
     Dosage: FIRST ROUND THERAPY
     Route: 048
     Dates: start: 20190419, end: 20190424

REACTIONS (3)
  - Multiple sclerosis [Unknown]
  - CD4 lymphocytes decreased [Unknown]
  - B-lymphocyte count decreased [Unknown]
